FAERS Safety Report 25336926 (Version 1)
Quarter: 2025Q2

REPORT INFORMATION
  Report Type: Spontaneous
  Country: CA (occurrence: CA)
  Receive Date: 20250520
  Receipt Date: 20250520
  Transmission Date: 20250716
  Serious: Yes (Life-Threatening, Hospitalization)
  Sender: MERCK SHARP & DOHME LLC
  Company Number: CA-009507513-2286823

PATIENT
  Age: 62 Year
  Sex: Female
  Weight: 120 kg

DRUGS (27)
  1. DAPTOMYCIN [Suspect]
     Active Substance: DAPTOMYCIN
     Indication: Staphylococcal infection
     Route: 042
  2. ALLOPURINOL [Concomitant]
     Active Substance: ALLOPURINOL
     Route: 048
  3. ASPIRIN [Concomitant]
     Active Substance: ASPIRIN
     Route: 048
  4. BETAMETHASONE VALERATE [Concomitant]
     Active Substance: BETAMETHASONE VALERATE
     Route: 065
  5. CALCIUM + MAGNESIUM WITH VITAMIN D [Concomitant]
     Route: 065
  6. CANDESARTAN [Concomitant]
     Active Substance: CANDESARTAN
     Route: 065
  7. CETIRIZINE [Concomitant]
     Active Substance: CETIRIZINE HYDROCHLORIDE
     Route: 065
  8. COLCHICINE [Concomitant]
     Active Substance: COLCHICINE
     Route: 048
  9. EPREX STERILE SOLUTION [Concomitant]
     Route: 065
  10. EVENING PRIMROSE OIL\HERBALS [Concomitant]
     Active Substance: EVENING PRIMROSE OIL\HERBALS
     Route: 048
  11. FERROUS FUMARATE [Concomitant]
     Active Substance: FERROUS FUMARATE
     Route: 065
  12. FISH OIL [Concomitant]
     Active Substance: FISH OIL
     Route: 065
  13. SUCRALFATE [Concomitant]
     Active Substance: SUCRALFATE
     Route: 065
  14. SYMBICORT TURBUHALER (BUDESONID +  FORMOTEROL) [Concomitant]
     Route: 065
  15. TRESIBA [Concomitant]
     Active Substance: INSULIN DEGLUDEC
     Route: 065
  16. TRURAPI VIAL [Concomitant]
     Route: 065
  17. HERBALS\TURMERIC [Concomitant]
     Active Substance: HERBALS\TURMERIC
     Route: 065
  18. VITAMIN B12 [Concomitant]
     Active Substance: CYANOCOBALAMIN
     Route: 065
  19. ZINC [Concomitant]
     Active Substance: ZINC
     Route: 065
  20. FUROSEMIDE [Concomitant]
     Active Substance: FUROSEMIDE
     Route: 065
  21. JARDIANCE [Concomitant]
     Active Substance: EMPAGLIFLOZIN
     Route: 048
  22. IVABRADINE [Concomitant]
     Active Substance: IVABRADINE
     Route: 048
  23. LANSOPRAZOLE [Concomitant]
     Active Substance: LANSOPRAZOLE
     Route: 048
  24. METOPROLOL [Concomitant]
     Active Substance: METOPROLOL
     Route: 065
  25. OZEMPIC [Concomitant]
     Active Substance: SEMAGLUTIDE
     Route: 065
  26. ROSUVASTATIN [Concomitant]
     Active Substance: ROSUVASTATIN
     Route: 048
  27. ALBUTEROL [Concomitant]
     Active Substance: ALBUTEROL
     Route: 065

REACTIONS (5)
  - Dyspnoea [Recovering/Resolving]
  - Oxygen therapy [Recovering/Resolving]
  - Pneumonitis [Recovering/Resolving]
  - Lung consolidation [Recovering/Resolving]
  - Pyrexia [Recovering/Resolving]
